FAERS Safety Report 4386495-0 (Version None)
Quarter: 2004Q2

REPORT INFORMATION
  Report Type: 
  Country: None (occurrence: None)
  Receive Date: 20040629
  Receipt Date: 20040622
  Transmission Date: 20050107
  Serious: Yes (Hospitalization)
  Sender: FDA-Public Use
  Company Number: DE-BRISTOL-MYERS SQUIBB COMPANY-12621827

PATIENT
  Age: 67 Year
  Sex: Male
  Weight: 68 kg

DRUGS (8)
  1. CARBOPLATIN [Suspect]
     Indication: PLEURAL MESOTHELIOMA
     Route: 042
     Dates: start: 20040206
  2. PEMETREXED DISODIUM [Suspect]
     Indication: PLEURAL MESOTHELIOMA
     Route: 042
     Dates: start: 20040206
  3. LAFOL [Concomitant]
     Indication: PROPHYLAXIS
     Dates: start: 20040206
  4. XIMOVAN [Concomitant]
     Indication: SLEEP DISORDER
     Dates: start: 20040413, end: 20040414
  5. PANTOZOL [Concomitant]
     Indication: PROPHYLAXIS
     Dates: start: 20040204
  6. ANZEMET [Concomitant]
     Indication: PROPHYLAXIS
     Dates: start: 20040413, end: 20040419
  7. FORTECORTIN [Concomitant]
     Dates: start: 20040413, end: 20040415
  8. BIFITERAL [Concomitant]
     Indication: CONSTIPATION
     Dates: start: 20040413

REACTIONS (2)
  - GASTRITIS [None]
  - PANCYTOPENIA [None]
